FAERS Safety Report 8182823-9 (Version None)
Quarter: 2012Q1

REPORT INFORMATION
  Report Type: 
  Country: None (occurrence: None)
  Receive Date: 20120305
  Receipt Date: 20120228
  Transmission Date: 20120608
  Serious: Yes (Death)
  Sender: FDA-Public Use
  Company Number: US-CELGENEUS-163-21880-12023082

PATIENT
  Age: 65 Year
  Sex: Female

DRUGS (7)
  1. LEVOTHROID [Concomitant]
     Route: 065
  2. LOSARTAN POTASSIUM [Concomitant]
     Route: 065
  3. ETODOLAC [Concomitant]
     Route: 065
  4. REVLIMID [Suspect]
     Indication: MULTIPLE MYELOMA
     Dosage: 5 MILLIGRAM
     Route: 048
     Dates: start: 20110501, end: 20110701
  5. SENSIPER [Concomitant]
     Route: 065
  6. RENVELA [Concomitant]
     Route: 065
  7. OMEPRAZOLE [Concomitant]
     Route: 065

REACTIONS (1)
  - MULTIPLE MYELOMA [None]
